FAERS Safety Report 15425158 (Version 5)
Quarter: 2018Q4

REPORT INFORMATION
  Report Type: Spontaneous
  Country: CA (occurrence: CA)
  Receive Date: 20180925
  Receipt Date: 20181023
  Transmission Date: 20190204
  Serious: Yes (Other)
  Sender: FDA-Public Use
  Company Number: CA-CELLTRION INC.-2018CA020443

PATIENT

DRUGS (12)
  1. INFLECTRA [Suspect]
     Active Substance: INFLIXIMAB-DYYB
     Dosage: 600 MG, ON EVERY 0,2,6 WEEKS, THEN EVERY 8 WEEKS; INTRAVENOUS
     Route: 042
     Dates: start: 20180918, end: 20180918
  2. ROSUVASTATIN. [Concomitant]
     Active Substance: ROSUVASTATIN
     Dosage: UNK
     Dates: start: 201602
  3. HYDROCORTISONE. [Concomitant]
     Active Substance: HYDROCORTISONE
  4. INFLECTRA [Suspect]
     Active Substance: INFLIXIMAB-DYYB
     Indication: COLITIS ULCERATIVE
     Dosage: 600 MG, ON EVERY 0,2,6 WEEKS, THEN EVERY 8 WEEKS; INTRAVENOUS
     Route: 042
     Dates: start: 20180612
  5. ALLOPURINOL. [Concomitant]
     Active Substance: ALLOPURINOL
     Dosage: UNK
  6. BISOPROLOL [Concomitant]
     Active Substance: BISOPROLOL
     Dosage: UNK
     Dates: start: 201607
  7. PREDNISONE. [Concomitant]
     Active Substance: PREDNISONE
     Dosage: UNK
  8. VITAMIN D [Concomitant]
     Active Substance: CHOLECALCIFEROL
     Dosage: UNK
  9. MEZAVANT [Concomitant]
     Active Substance: MESALAMINE
     Dosage: UNK
     Dates: start: 20180407
  10. INFLECTRA [Suspect]
     Active Substance: INFLIXIMAB-DYYB
     Dosage: 600 MG, ON EVERY 0,2,6 WEEKS, THEN EVERY 8 WEEKS; INTRAVENOUS
     Route: 042
     Dates: start: 20180724
  11. PENTASA [Concomitant]
     Active Substance: MESALAMINE
     Dosage: UNK
     Dates: start: 20180407
  12. ACETAMINOPHEN. [Concomitant]
     Active Substance: ACETAMINOPHEN

REACTIONS (6)
  - Gait inability [Unknown]
  - Pruritus [Recovered/Resolved]
  - Drug level increased [Unknown]
  - Dupuytren^s contracture [Unknown]
  - Drug ineffective [Unknown]
  - Pain in extremity [Recovered/Resolved]

NARRATIVE: CASE EVENT DATE: 201809
